FAERS Safety Report 12478615 (Version 1)
Quarter: 2016Q2

REPORT INFORMATION
  Report Type: Spontaneous
  Country: US (occurrence: US)
  Receive Date: 20160619
  Receipt Date: 20160619
  Transmission Date: 20160815
  Serious: No
  Sender: FDA-Public Use
  Company Number: US-ENDO PHARMACEUTICALS INC.-2015-004469

PATIENT
  Age: 74 Year
  Sex: Female
  Weight: 54.48 kg

DRUGS (5)
  1. NYSTATIN CREAM [Suspect]
     Active Substance: NYSTATIN
     Indication: RASH
  2. MULTIVITAMINS [Concomitant]
     Active Substance: VITAMINS
     Indication: PRODUCT USED FOR UNKNOWN INDICATION
  3. LOSARTAN POTASSIUM / HYDROCHLOROTHIAZIDE TABLETS [Concomitant]
     Indication: HYPERTENSION
  4. NYSTATIN CREAM [Suspect]
     Active Substance: NYSTATIN
     Indication: FUNGAL INFECTION
     Route: 061
     Dates: start: 201511
  5. HYDROCORTISONE CREAM [Concomitant]
     Active Substance: HYDROCORTISONE
     Indication: PRURITUS

REACTIONS (1)
  - Drug ineffective [Not Recovered/Not Resolved]

NARRATIVE: CASE EVENT DATE: 201511
